FAERS Safety Report 5078674-4 (Version None)
Quarter: 2006Q3

REPORT INFORMATION
  Report Type: 
  Country: None (occurrence: None)
  Receive Date: 20060809
  Receipt Date: 20060731
  Transmission Date: 20061208
  Serious: Yes (Hospitalization)
  Sender: FDA-Public Use
  Company Number: 2006-08-0255

PATIENT
  Age: 29 Year
  Sex: Male

DRUGS (1)
  1. CLARITIN [Suspect]
     Dosage: 3X10MG TAB QD ORAL
     Route: 048
     Dates: start: 20041201, end: 20041201

REACTIONS (3)
  - FATIGUE [None]
  - INSOMNIA [None]
  - UNEVALUABLE EVENT [None]
